FAERS Safety Report 15247661 (Version 2)
Quarter: 2018Q3

REPORT INFORMATION
  Report Type: Spontaneous
  Country: US (occurrence: US)
  Receive Date: 20180807
  Receipt Date: 20180912
  Transmission Date: 20181010
  Serious: Yes (Other)
  Sender: FDA-Public Use
  Company Number: US-ASTRAZENECA-2018SE98546

PATIENT
  Sex: Female
  Weight: 100.7 kg

DRUGS (2)
  1. PROLASTIN [Concomitant]
     Active Substance: .ALPHA.1-PROTEINASE INHIBITOR HUMAN
     Indication: LUNG DISORDER
     Dosage: ONCE A WEEK
  2. FASENRA [Suspect]
     Active Substance: BENRALIZUMAB
     Indication: ASTHMA
     Route: 058
     Dates: start: 2018

REACTIONS (3)
  - Fall [Unknown]
  - Wound [Unknown]
  - Cellulitis [Unknown]
